FAERS Safety Report 11155732 (Version 2)
Quarter: 2015Q3

REPORT INFORMATION
  Report Type: Other
  Country: GB (occurrence: GB)
  Receive Date: 20150602
  Receipt Date: 20150708
  Transmission Date: 20151125
  Serious: Yes (Other)
  Sender: FDA-Public Use
  Company Number: GB-MYLANLABS-2015M1016697

PATIENT

DRUGS (8)
  1. ADCAL-D3 [Concomitant]
     Active Substance: CALCIUM CARBONATE\CHOLECALCIFEROL
     Dosage: UNK
     Route: 048
  2. CISPLATIN. [Suspect]
     Active Substance: CISPLATIN
     Indication: GASTRIC CANCER
     Dosage: 115 MG, UNK (DATE OF MOST RECENT DOSE: 02 FEB 2011)
     Route: 042
     Dates: start: 20110202
  3. XELODA [Suspect]
     Active Substance: CAPECITABINE
     Indication: GASTRIC CANCER
     Dosage: 1150 MG, UNK (DATE OF MOST RECENT DOSE: 23 FEB 2011)
     Route: 048
  4. LOSARTAN. [Concomitant]
     Active Substance: LOSARTAN
     Dosage: UNK
     Route: 048
  5. AVASTIN [Suspect]
     Active Substance: BEVACIZUMAB
     Indication: GASTRIC CANCER
     Dosage: 600 MG, UNK (DATE OF MOST RECENT DOSE: 23 FEB 2011)
     Route: 042
  6. FENOBRAT [Concomitant]
     Dosage: UNK
     Route: 048
  7. EPIRUBICIN [Suspect]
     Active Substance: EPIRUBICIN
     Indication: GASTRIC CANCER
     Dosage: 100 MG, UNK (DATE OF MOST RECENT DOSE: 23 FEB 2011)
     Route: 042
     Dates: start: 20110202
  8. FERROUS SULFATE [Concomitant]
     Active Substance: FERROUS SULFATE\FERROUS SULFATE, DRIED
     Dosage: UNK
     Route: 048

REACTIONS (1)
  - Pericarditis [Recovered/Resolved with Sequelae]

NARRATIVE: CASE EVENT DATE: 20110223
